FAERS Safety Report 6575277-7 (Version None)
Quarter: 2010Q1

REPORT INFORMATION
  Report Type: 
  Country: None (occurrence: None)
  Receive Date: 20100209
  Receipt Date: 20100129
  Transmission Date: 20100710
  Serious: Yes (Hospitalization)
  Sender: FDA-Public Use
  Company Number: FR-ROCHE-668590

PATIENT
  Sex: Male

DRUGS (4)
  1. BEVACIZUMAB [Suspect]
     Route: 042
     Dates: start: 20070411, end: 20070628
  2. CAMPTOSAR [Suspect]
     Dosage: FORM: CONCENTRATE FOR SOLUTION FOR INFUSION
     Route: 042
     Dates: start: 20070411, end: 20070628
  3. FLUOROURACIL [Suspect]
     Route: 041
     Dates: start: 20070411, end: 20070630
  4. ELVORINE [Suspect]
     Route: 042
     Dates: start: 20070411, end: 20070628

REACTIONS (3)
  - DEHYDRATION [None]
  - DEPRESSION [None]
  - DIARRHOEA [None]
